FAERS Safety Report 10034677 (Version 1)
Quarter: 2014Q1

REPORT INFORMATION
  Report Type: Spontaneous
  Country: IT (occurrence: None)
  Receive Date: 20140321
  Receipt Date: 20140321
  Transmission Date: 20141002
  Serious: Yes (Other)
  Sender: FDA-Public Use
  Company Number: FK201400877

PATIENT
  Age: 80 Year
  Sex: Female
  Weight: 56 kg

DRUGS (9)
  1. IRINOTECAN (IRINOTECAN) (IRINOTECAN) [Suspect]
     Indication: COLON CANCER
     Dosage: 130MG, CYCLICAL INTRAVENOUS
     Dates: start: 20130130, end: 20130611
  2. ERBITUX (CETUXIMAB) (CETUXIMAB) [Suspect]
     Indication: COLON CANCER
     Dosage: 700MG, CYCLICAL INTRAVENOUS
     Dates: start: 20130130, end: 20131211
  3. FLUOROURACIL (FLUOROURACIL) (FLUOROURACIL) [Suspect]
     Indication: COLON CANCER
     Dosage: 420MG CYCLICAL INTRAVENOUS BOLUS
     Route: 040
     Dates: start: 20130130, end: 20130611
  4. LEVOFOLINIC ACID (LEVOFOLINIC ACID) [Concomitant]
  5. RYTMONORM (PROPAFENONE HYDROCHLORIDE [Concomitant]
  6. NOVORAPID (INSULIN ASPART) [Concomitant]
  7. LEVEMIR (INSULIN DETEMIR) [Concomitant]
  8. PLAUNAZIDE (BENICAR HCT) [Concomitant]
  9. RYTMONORM (PROPAFE [Concomitant]

REACTIONS (1)
  - Herpes zoster [None]
